FAERS Safety Report 16558448 (Version 1)
Quarter: 2019Q3

REPORT INFORMATION
  Report Type: Spontaneous
  Country: PL (occurrence: PL)
  Receive Date: 20190711
  Receipt Date: 20190711
  Transmission Date: 20191004
  Serious: Yes (Other)
  Sender: FDA-Public Use
  Company Number: PL-ROCHE-2353122

PATIENT
  Sex: Male

DRUGS (1)
  1. RITUXIMAB. [Suspect]
     Active Substance: RITUXIMAB
     Indication: NEPHROTIC SYNDROME
     Dosage: 4 DF, UNK
     Route: 065

REACTIONS (3)
  - Nephrotic syndrome [Recovering/Resolving]
  - Off label use [Unknown]
  - Intentional product use issue [Unknown]
